FAERS Safety Report 25425113 (Version 1)
Quarter: 2025Q2

REPORT INFORMATION
  Report Type: Spontaneous
  Country: PL (occurrence: PL)
  Receive Date: 20250611
  Receipt Date: 20250611
  Transmission Date: 20250717
  Serious: Yes (Other)
  Sender: NOVARTIS
  Company Number: PL-002147023-NVSC2025PL053533

PATIENT
  Sex: Female

DRUGS (3)
  1. ASCIMINIB [Suspect]
     Active Substance: ASCIMINIB
     Indication: Chronic myeloid leukaemia
     Dosage: UNK, QD, (2X40MG/DAILY)
     Route: 065
     Dates: start: 20231204
  2. ASCIMINIB [Suspect]
     Active Substance: ASCIMINIB
     Dosage: 40 MG, QD
     Route: 065
     Dates: start: 202407
  3. IMATINIB [Suspect]
     Active Substance: IMATINIB
     Indication: Chronic myeloid leukaemia
     Dosage: 400 MG, QD
     Route: 065
     Dates: start: 202401

REACTIONS (3)
  - Pancreatic toxicity [Unknown]
  - Nausea [Unknown]
  - Lipase increased [Unknown]

NARRATIVE: CASE EVENT DATE: 20240701
